FAERS Safety Report 11143448 (Version 2)
Quarter: 2015Q4

REPORT INFORMATION
  Report Type: Report from Study
  Country: JP (occurrence: JP)
  Receive Date: 20150526
  Receipt Date: 20151117
  Transmission Date: 20160304
  Serious: Yes (Death, Hospitalization, Other)
  Sender: FDA-Public Use
  Company Number: JP-ROCHE-1582200

PATIENT
  Age: 68 Year
  Sex: Male

DRUGS (19)
  1. METHOXY POLYETHYLENE GLYCOL-EPOETIN BETA [Suspect]
     Active Substance: METHOXY POLYETHYLENE GLYCOL-EPOETIN BETA
     Indication: NEPHROGENIC ANAEMIA
     Dosage: MOST RECENT DOSE: 24/APR/2015
     Route: 042
     Dates: start: 20150112
  2. CLARITH [Concomitant]
     Active Substance: CLARITHROMYCIN
     Indication: CARDIAC FAILURE
     Dosage: OTHER PURPOSES: RESPIRATORY FAILURE
     Route: 048
     Dates: end: 20150514
  3. SYMBICORT [Concomitant]
     Active Substance: BUDESONIDE\FORMOTEROL FUMARATE DIHYDRATE
     Dosage: DOSAGE IS UNCERTAIN.
     Route: 065
  4. SPIRONOLACTONE. [Concomitant]
     Active Substance: SPIRONOLACTONE
     Indication: CARDIAC FAILURE
     Route: 048
     Dates: end: 20150514
  5. FOSRENOL [Concomitant]
     Active Substance: LANTHANUM CARBONATE
     Dosage: DOSAGE IS UNCERTAIN.
     Route: 048
  6. RENIVACE [Concomitant]
     Active Substance: ENALAPRIL
     Indication: CARDIAC FAILURE
     Dosage: OTHER PURPOSES: RESPIRATORY FAILURE
     Route: 048
     Dates: end: 20150514
  7. OXAROL [Concomitant]
     Active Substance: MAXACALCITOL
     Dosage: DOSAGE IS UNCERTAIN.
     Route: 042
  8. OLMETEC [Concomitant]
     Active Substance: OLMESARTAN MEDOXOMIL
     Dosage: DOSAGE IS UNCERTAIN.
     Route: 065
  9. CALONAL [Concomitant]
     Active Substance: ACETAMINOPHEN
     Dosage: DOSAGE IS UNCERTAIN.
     Route: 065
  10. RISUMIC [Concomitant]
     Active Substance: AMEZINIUM METILSULFATE
     Dosage: DOSAGE IS UNCERTAIN.
     Route: 065
  11. NEXIUM [Concomitant]
     Active Substance: ESOMEPRAZOLE MAGNESIUM
     Indication: CARDIAC FAILURE
     Dosage: OTHER PURPOSES: RESPIRATORY FAILURE
     Route: 048
     Dates: end: 20150514
  12. EQUA [Concomitant]
     Active Substance: VILDAGLIPTIN
     Dosage: DOSAGE IS UNCERTAIN.
     Route: 065
  13. SULTANOL [Concomitant]
     Active Substance: ALBUTEROL SULFATE
     Dosage: DOSAGE IS UNCERTAIN.
     Route: 065
  14. MAINTATE [Concomitant]
     Active Substance: BISOPROLOL FUMARATE
     Indication: CARDIAC FAILURE
     Dosage: OTHER PURPOSES: RESPIRATORY FAILURE
     Route: 048
     Dates: end: 20150514
  15. PREDONINE [Concomitant]
     Active Substance: PREDNISOLONE\PREDNISOLONE ACETATE\PREDNISOLONE SODIUM SUCCINATE
     Indication: CARDIAC FAILURE
     Route: 048
     Dates: end: 20150514
  16. WARFARIN [Concomitant]
     Active Substance: WARFARIN
     Indication: CARDIAC FAILURE
     Dosage: OTHER PURPOSES: RESPIRATORY FAILURE
     Route: 048
     Dates: end: 20150514
  17. BAYASPIRIN [Concomitant]
     Active Substance: ASPIRIN
     Indication: CARDIAC FAILURE
     Dosage: OTHER PURPOSES: RESPIRATORY FAILURE
     Route: 048
     Dates: end: 20150514
  18. MYSLEE [Concomitant]
     Active Substance: ZOLPIDEM TARTRATE
     Dosage: DOSAGE IS UNCERTAIN.
     Route: 065
  19. LIPITOR [Concomitant]
     Active Substance: ATORVASTATIN CALCIUM
     Dosage: DOSAGE IS UNCERTAIN.
     Route: 065

REACTIONS (4)
  - Pneumonia [Recovered/Resolved]
  - Cardiac failure [Unknown]
  - Sudden death [Fatal]
  - Emphysema [Unknown]

NARRATIVE: CASE EVENT DATE: 20150218
